FAERS Safety Report 7288565-6 (Version None)
Quarter: 2011Q1

REPORT INFORMATION
  Report Type: 
  Country: None (occurrence: None)
  Receive Date: 20110211
  Receipt Date: 20110203
  Transmission Date: 20110831
  Serious: Yes (Life-Threatening, Hospitalization, Disabling)
  Sender: FDA-Public Use
  Company Number: DK-JNJFOC-20101202775

PATIENT
  Sex: Female

DRUGS (5)
  1. TEGRETOL [Suspect]
     Indication: EPILEPSY
     Dosage: SINCE 15 YEARS.
     Route: 048
  2. CIPROFLOXACIN HCL [Suspect]
     Indication: DIARRHOEA
     Route: 048
  3. PRIMPERAN TAB [Suspect]
     Indication: NAUSEA
     Route: 048
  4. IMODIUM [Suspect]
     Route: 048
  5. IMODIUM [Suspect]
     Indication: DIARRHOEA
     Route: 048

REACTIONS (3)
  - TRANSIENT ISCHAEMIC ATTACK [None]
  - TOXIC EPIDERMAL NECROLYSIS [None]
  - PRODUCT QUALITY ISSUE [None]
